FAERS Safety Report 4413735-1 (Version None)
Quarter: 2004Q2

REPORT INFORMATION
  Report Type: 
  Country: None (occurrence: None)
  Receive Date: 20040630
  Receipt Date: 20040303
  Transmission Date: 20050107
  Serious: No
  Sender: FDA-Public Use
  Company Number: 04P-163-0252136-00

PATIENT
  Age: 59 Year
  Sex: Female
  Weight: 81.6475 kg

DRUGS (14)
  1. HUMIRA [Suspect]
     Indication: RHEUMATOID ARTHRITIS
     Dosage: 40 MG, 1 IN 2 WK, SUBCUTANEOUS
     Route: 058
     Dates: start: 20030723, end: 20040101
  2. ATORVASTATIN CALCIUM [Concomitant]
  3. QUINAPRIL HCL [Concomitant]
  4. LANSOPRAZOLE [Concomitant]
  5. INSULIN [Concomitant]
  6. ESTRADIOL [Concomitant]
  7. ZETIA [Concomitant]
  8. HYDROCHLOROTHIAZIDE [Concomitant]
  9. FOLIC ACID [Concomitant]
  10. IRON [Concomitant]
  11. METHOTREXATE [Concomitant]
  12. GABAPENTIN [Concomitant]
  13. NEFAZODONE HYDROCHLORIDE [Concomitant]
  14. ASPIRIN [Concomitant]

REACTIONS (3)
  - CARDIAC DISORDER [None]
  - CHEST PAIN [None]
  - DIFFICULTY IN WALKING [None]
